FAERS Safety Report 15569512 (Version 2)
Quarter: 2018Q4

REPORT INFORMATION
  Report Type: Spontaneous
  Country: US (occurrence: US)
  Receive Date: 20181031
  Receipt Date: 20181121
  Transmission Date: 20190205
  Serious: No
  Sender: FDA-Public Use
  Company Number: US-BIOGEN-2018BI00630453

PATIENT
  Sex: Female

DRUGS (3)
  1. LEVOTHYROXINE SODIUM. [Concomitant]
     Active Substance: LEVOTHYROXINE SODIUM
     Route: 065
  2. BACLOFEN. [Concomitant]
     Active Substance: BACLOFEN
     Route: 065
  3. AVONEX [Suspect]
     Active Substance: INTERFERON BETA-1A
     Indication: MULTIPLE SCLEROSIS
     Dosage: INJECT 30 MCG INTRAMUSCULARLY ONCE WEEKLY
     Route: 030
     Dates: start: 20120213

REACTIONS (10)
  - Influenza like illness [Unknown]
  - Muscle spasms [Recovered/Resolved]
  - Myalgia [Unknown]
  - Fatigue [Unknown]
  - Drug intolerance [Unknown]
  - Muscle fatigue [Unknown]
  - Asthenia [Unknown]
  - Muscular weakness [Unknown]
  - Emotional distress [Unknown]
  - Arthralgia [Unknown]
